FAERS Safety Report 9536058 (Version 1)
Quarter: 2013Q2

REPORT INFORMATION
  Report Type: Spontaneous
  Country: US (occurrence: None)
  Receive Date: 20130507
  Receipt Date: 20130507
  Transmission Date: 20140414
  Serious: No
  Sender: FDA-Public Use
  Company Number: PHEH2012US024101

PATIENT
  Age: 34 Year
  Sex: Female

DRUGS (11)
  1. AFINITOR (RAD) UNKNOWN [Suspect]
     Indication: TUBEROUS SCLEROSIS
     Dosage: 10 MG, DAILY, ORAL
     Route: 048
     Dates: start: 20120725
  2. IRON SUPPLEMENTS (NO INGREDIENTS/SUBSTANCES) [Concomitant]
  3. METOPROLOL (METOPROLOL) [Concomitant]
  4. GLIPIZDE (GLIPIZDE) [Concomitant]
  5. SIMVASTATIN (SIMVASTATIN) [Concomitant]
  6. NORTRIPTYLINE (NORTRIPTYLINE) [Concomitant]
  7. NEXIUM (AMOXICILLIN TRIHYDRATE, CLARITHROMYCIN, ESOMEPRAZOLE MAGNESIUM) [Concomitant]
  8. HYDROCHLOROTHIAZIDE (HYDROCHLOROTHIAZIDE) [Concomitant]
  9. DEXILANT (DEXLANSOPRAZOLE) [Concomitant]
  10. LEVEMIR (INSULIN DETEMIR) [Concomitant]
  11. LANTUS (INSULIN GLARGINE) [Concomitant]

REACTIONS (1)
  - Pruritus [None]
